FAERS Safety Report 8155850-5 (Version None)
Quarter: 2012Q1

REPORT INFORMATION
  Report Type: 
  Country: None (occurrence: None)
  Receive Date: 20120221
  Receipt Date: 20120221
  Transmission Date: 20120608
  Serious: Yes (Disabling, Other)
  Sender: FDA-Public Use
  Company Number: None

PATIENT
  Age: 66 Year
  Sex: Female
  Weight: 54.4316 kg

DRUGS (1)
  1. GENTAMICIN [Suspect]
     Indication: PNEUMONIA
     Dosage: DAILY STOP DAYS IV
     Route: 042
     Dates: start: 20101230, end: 20110105

REACTIONS (7)
  - FATIGUE [None]
  - RENAL FAILURE [None]
  - TREMOR [None]
  - BALANCE DISORDER [None]
  - GAIT DISTURBANCE [None]
  - ASTHENIA [None]
  - DYSSTASIA [None]
